FAERS Safety Report 14678601 (Version 1)
Quarter: 2018Q1

REPORT INFORMATION
  Report Type: Spontaneous
  Country: US (occurrence: US)
  Receive Date: 20180326
  Receipt Date: 20180326
  Transmission Date: 20180509
  Serious: Yes (Other)
  Sender: FDA-Public Use
  Company Number: US-RECKITT BENCKISER HEALTHCARE INT LIMITED-RB-83594-2018

PATIENT
  Age: 19 Year
  Sex: Female

DRUGS (1)
  1. MUCINEX [Suspect]
     Active Substance: GUAIFENESIN
     Indication: DRUG ABUSE
     Dosage: UNK
     Route: 065

REACTIONS (6)
  - Euphoric mood [Unknown]
  - Autoscopy [Unknown]
  - Intentional product misuse [Unknown]
  - Drug abuse [Unknown]
  - Depression [Unknown]
  - Intentional overdose [Unknown]
